FAERS Safety Report 13086794 (Version 1)
Quarter: 2017Q1

REPORT INFORMATION
  Report Type: Spontaneous
  Country: FR (occurrence: FR)
  Receive Date: 20170104
  Receipt Date: 20170104
  Transmission Date: 20170428
  Serious: Yes (Other)
  Sender: FDA-Public Use
  Company Number: FR-STALLERGENES SAS-1061546

PATIENT
  Age: 24 Year
  Sex: Female

DRUGS (4)
  1. AIROMIR [Concomitant]
     Active Substance: ALBUTEROL SULFATE
  2. ORALAIR [Suspect]
     Active Substance: ANTHOXANTHUM ODORATUM POLLEN\DACTYLIS GLOMERATA POLLEN\LOLIUM PERENNE POLLEN\PHLEUM PRATENSE POLLEN\POA PRATENSIS POLLEN
     Indication: SNEEZING
     Route: 060
  3. STALORAL [Suspect]
     Active Substance: ALLERGENIC EXTRACTS
     Route: 060
     Dates: start: 2013
  4. SERETIDE [Concomitant]
     Active Substance: FLUTICASONE PROPIONATE\SALMETEROL XINAFOATE

REACTIONS (5)
  - Overdose [Recovered/Resolved]
  - Condition aggravated [Recovered/Resolved]
  - Exposure during pregnancy [Recovered/Resolved]
  - Abortion spontaneous [Recovered/Resolved]
  - Asthmatic crisis [Recovered/Resolved]

NARRATIVE: CASE EVENT DATE: 201512
